FAERS Safety Report 25461630 (Version 1)
Quarter: 2025Q2

REPORT INFORMATION
  Report Type: Report from Study
  Country: CA (occurrence: CA)
  Receive Date: 20250620
  Receipt Date: 20250620
  Transmission Date: 20250716
  Serious: Yes (Hospitalization)
  Sender: BIOCON
  Company Number: CA-BIOCON BIOLOGICS LIMITED-BBL2025003265

PATIENT

DRUGS (1)
  1. HULIO [Suspect]
     Active Substance: ADALIMUMAB-FKJP
     Indication: Maternal exposure timing unspecified
     Route: 064
     Dates: start: 20240501

REACTIONS (3)
  - Intensive care [Unknown]
  - Premature baby [Unknown]
  - Foetal exposure during pregnancy [Unknown]
